FAERS Safety Report 6044367-X (Version None)
Quarter: 2009Q1

REPORT INFORMATION
  Report Type: 
  Country: None (occurrence: None)
  Receive Date: 20090115
  Receipt Date: 20090115
  Transmission Date: 20090719
  Serious: No
  Sender: FDA-Public Use
  Company Number: None

PATIENT
  Sex: Female

DRUGS (7)
  1. ZOMETA [Suspect]
     Indication: BREAST CANCER
     Dosage: 4 MG MONTHLY IV
     Route: 042
     Dates: start: 19990101, end: 20040101
  2. FOCAL RADIATION FOR RENAL CELL CARCINOMA [Concomitant]
  3. POLYGAM S/D [Concomitant]
  4. LAMICTAL [Concomitant]
  5. CYMBALTA [Concomitant]
  6. ASPIRIN [Concomitant]
  7. ZOMETA [Suspect]
     Indication: RENAL CELL CARCINOMA
     Dosage: 4 MG MONTHLY IV
     Route: 042
     Dates: start: 19990101, end: 20040101

REACTIONS (3)
  - JAW DISORDER [None]
  - OSTEONECROSIS [None]
  - PURULENT DISCHARGE [None]
